FAERS Safety Report 24957171 (Version 1)
Quarter: 2025Q1

REPORT INFORMATION
  Report Type: Spontaneous
  Country: US (occurrence: US)
  Receive Date: 20250211
  Receipt Date: 20250211
  Transmission Date: 20250408
  Serious: No
  Sender: BEIGENE
  Company Number: US-BEIGENE-BGN-2025-002051

PATIENT
  Age: 89 Year

DRUGS (1)
  1. BRUKINSA [Suspect]
     Active Substance: ZANUBRUTINIB
     Indication: Chronic lymphocytic leukaemia
     Dosage: 240 MILLIGRAM, QD

REACTIONS (1)
  - COVID-19 [Recovering/Resolving]
